FAERS Safety Report 20819141 (Version 6)
Quarter: 2022Q4

REPORT INFORMATION
  Report Type: Spontaneous
  Country: US (occurrence: US)
  Receive Date: 20220512
  Receipt Date: 20221019
  Transmission Date: 20230113
  Serious: Yes (Other)
  Sender: FDA-Public Use
  Company Number: US-BRISTOL-MYERS SQUIBB COMPANY-2022-034112

PATIENT
  Age: 72 Year
  Sex: Female

DRUGS (2)
  1. REVLIMID [Suspect]
     Active Substance: LENALIDOMIDE
     Indication: Product used for unknown indication
     Dosage: 15 MG DAILY FOR 21 DAYS
     Route: 048
     Dates: start: 202104
  2. REVLIMID [Suspect]
     Active Substance: LENALIDOMIDE
     Dosage: FREQUENCY-OTHER
     Route: 048
     Dates: start: 20210504

REACTIONS (6)
  - Carpal tunnel syndrome [Unknown]
  - Muscle spasms [Unknown]
  - Musculoskeletal stiffness [Unknown]
  - Urinary tract infection [Recovered/Resolved]
  - Pruritus [Unknown]
  - Cough [Unknown]

NARRATIVE: CASE EVENT DATE: 20220301
